FAERS Safety Report 5133301-2 (Version None)
Quarter: 2006Q4

REPORT INFORMATION
  Report Type: 
  Country: None (occurrence: None)
  Receive Date: 20060831
  Receipt Date: 20060502
  Transmission Date: 20070319
  Serious: No
  Sender: FDA-Public Use
  Company Number: 2006-BP-03399BP

PATIENT
  Age: 82 Year
  Sex: Female

DRUGS (10)
  1. SPIRIVA [Suspect]
     Indication: EMPHYSEMA
     Dosage: 18 MCG (18 MCG,1 PUFF QD),IH
     Dates: start: 20050222
  2. SPIRIVA [Suspect]
  3. LEVOTHYROXINE SODIUM [Concomitant]
  4. LISINOPRIL [Concomitant]
  5. METOPROLOL TARTRATE [Concomitant]
  6. ASPIRIN [Concomitant]
  7. FOSAMAX [Concomitant]
  8. CALCIUM [Concomitant]
  9. FOLIC ACID [Concomitant]
  10. FERROUS SULFATE TAB [Concomitant]

REACTIONS (1)
  - DRUG INEFFECTIVE [None]
